FAERS Safety Report 8000785-1 (Version None)
Quarter: 2011Q4

REPORT INFORMATION
  Report Type: 
  Country: None (occurrence: None)
  Receive Date: 20111222
  Receipt Date: 20111220
  Transmission Date: 20120403
  Serious: No
  Sender: FDA-Public Use
  Company Number: US-BAYER-2011-122479

PATIENT
  Sex: Male
  Weight: 159 kg

DRUGS (5)
  1. INSULIN [Concomitant]
  2. ONE A DAY MEN'S 50 PLUS ADVANTAGE [Concomitant]
  3. CARVEDILOL [Concomitant]
  4. VICODIN [Concomitant]
  5. ALEVE (CAPLET) [Suspect]
     Indication: PAIN
     Dosage: 2 DF, QD
     Route: 048
     Dates: start: 20111212, end: 20111214

REACTIONS (1)
  - PAIN [None]
